FAERS Safety Report 12170268 (Version 1)
Quarter: 2016Q1

REPORT INFORMATION
  Report Type: Spontaneous
  Country: US (occurrence: US)
  Receive Date: 20160311
  Receipt Date: 20160311
  Transmission Date: 20160526
  Serious: No
  Sender: FDA-Public Use
  Company Number: US-ASTRAZENECA-2016SE25564

PATIENT
  Age: 79 Year
  Sex: Female
  Weight: 65.8 kg

DRUGS (10)
  1. NEXIUM 24HR [Suspect]
     Active Substance: ESOMEPRAZOLE MAGNESIUM
     Indication: DYSPEPSIA
     Dosage: THEN AS NEEDED/NOW SHE IS NOT TAKING IT EVERY DAY/MAY SKIP A DAY OR TWO
     Route: 048
     Dates: start: 2016
  2. GLUCOSAMINE CHONDROITIN [Concomitant]
     Active Substance: CHONDROITIN SULFATE (BOVINE)\GLUCOSAMINE HYDROCHLORIDE
     Indication: ARTHRITIS
     Dosage: [GLUCOSAMINE, 1500MG]/[CHONDROITIN, 1200MG] ONE TABLET BY MOUTH A DAY
     Route: 048
     Dates: start: 2006
  3. VITAMIN E [Concomitant]
     Active Substance: .ALPHA.-TOCOPHEROL
     Indication: SUPPLEMENTATION THERAPY
     Dosage: 400IU ONE CAPSULE BY MOUTH A DAY
     Route: 048
  4. VENTOLIN [Concomitant]
     Active Substance: ALBUTEROL SULFATE
     Indication: ASTHMA
     Dosage: 90MCG TWO PUFFS BY MOUTH 4 TIMES A DAY OR AS NEEDED
     Route: 048
     Dates: start: 2015
  5. VITAMIN C [Concomitant]
     Active Substance: ASCORBIC ACID
     Indication: SUPPLEMENTATION THERAPY
     Dosage: 1000MG TWO TABLES BY MOUTH A DAY
     Route: 048
     Dates: start: 1966
  6. BREO ELLIPTA [Concomitant]
     Active Substance: FLUTICASONE FUROATE\VILANTEROL TRIFENATATE
     Indication: ASTHMA
     Dosage: [BREO, 100 MCG]/[ELLIPTA, 25 MCG] ONE PUFF BY MOUTH ONE TIME A DAY
     Route: 048
     Dates: start: 20160205
  7. VENTOLIN [Concomitant]
     Active Substance: ALBUTEROL SULFATE
     Indication: DYSPNOEA
     Dosage: 90MCG TWO PUFFS BY MOUTH 4 TIMES A DAY OR AS NEEDED
     Route: 048
     Dates: start: 2015
  8. NEXIUM 24HR [Suspect]
     Active Substance: ESOMEPRAZOLE MAGNESIUM
     Indication: DYSPEPSIA
     Dosage: 22.3MG ONE CAPSULE BY MOUTH EVERY DAY FOR THE FIRST COUPLE OF BOTTLES
     Route: 048
     Dates: start: 201601, end: 2016
  9. LEVOTHYROXINE. [Concomitant]
     Active Substance: LEVOTHYROXINE
     Indication: HYPOTHYROIDISM
     Dosage: 25MCG TWO TABLETS BY MOUTH ONCE A DAY
     Route: 048
     Dates: start: 1966
  10. CALCIUM + D3 [Concomitant]
     Active Substance: CALCIUM\CHOLECALCIFEROL
     Indication: SUPPLEMENTATION THERAPY
     Dosage: 600MG + D3 ONE TABLET BY MOUTH A DAY
     Route: 048

REACTIONS (3)
  - Intentional product misuse [Unknown]
  - Product container issue [Unknown]
  - Product package associated injury [Unknown]

NARRATIVE: CASE EVENT DATE: 2016
